FAERS Safety Report 4679975-1 (Version None)
Quarter: 2005Q2

REPORT INFORMATION
  Report Type: 
  Country: None (occurrence: None)
  Receive Date: 20050531
  Receipt Date: 20050518
  Transmission Date: 20051028
  Serious: Yes (Other)
  Sender: FDA-Public Use
  Company Number: 2005060340

PATIENT
  Age: 38 Year
  Sex: Female

DRUGS (2)
  1. BEXTRA [Suspect]
     Indication: PAIN
     Dosage: 20 MG (20 MG, 1 IN 1 D); ORAL
     Route: 048
     Dates: start: 20050401
  2. MIRENA [Concomitant]

REACTIONS (4)
  - ANXIETY [None]
  - HYPERSENSITIVITY [None]
  - TACHYCARDIA [None]
  - TREMOR [None]
